FAERS Safety Report 9592220 (Version 1)
Quarter: 2013Q4

REPORT INFORMATION
  Report Type: Spontaneous
  Country: FR (occurrence: FR)
  Receive Date: 20131004
  Receipt Date: 20131004
  Transmission Date: 20140711
  Serious: Yes (Hospitalization)
  Sender: FDA-Public Use
  Company Number: FR-009507513-1309FRA011714

PATIENT
  Age: 89 Year
  Sex: Male

DRUGS (16)
  1. TIENAM 500MG/500MG, POUDRE POUR PERFUSION [Suspect]
     Indication: ESCHERICHIA INFECTION
     Dosage: 1 DF, QID
     Route: 042
     Dates: start: 20130713, end: 20130719
  2. CHIBRO-PROSCAR [Suspect]
     Indication: BENIGN PROSTATIC HYPERPLASIA
     Dosage: 1 DF, QD
     Route: 048
     Dates: end: 20130712
  3. TRIFLUCAN [Suspect]
     Dosage: 500 MG, QD
     Route: 048
     Dates: start: 20130712, end: 20130717
  4. ZYLORIC [Suspect]
     Indication: GOUT
     Dosage: 200 MG, QD
     Route: 048
     Dates: end: 20130712
  5. HEMIGOXINE NATIVELLE [Suspect]
     Indication: ATRIAL FIBRILLATION
     Dosage: 1 DF, QD
     Route: 048
     Dates: end: 20130712
  6. FRAGMINE [Suspect]
     Indication: THROMBOSIS PROPHYLAXIS
     Dosage: 1 DF, QD
     Route: 058
     Dates: start: 20130713, end: 20130713
  7. CEFTRIAXONE SODIUM [Suspect]
     Indication: URINARY TRACT INFECTION
     Dosage: 1 G, QD
     Route: 042
     Dates: start: 20130707, end: 20130708
  8. AMIKACIN MYLAN [Suspect]
     Indication: URINARY TRACT INFECTION
     Dosage: UNK
     Route: 042
     Dates: start: 20130707, end: 20130708
  9. LASILIX FAIBLE [Suspect]
     Dosage: 20 MG, QD
     Route: 048
     Dates: end: 20130712
  10. INEXIUM [Suspect]
     Dosage: 40 MG, QD
     Route: 048
     Dates: end: 20130719
  11. PREVISCAN [Suspect]
     Dosage: 10 MG, QD
     Route: 048
     Dates: end: 20130807
  12. FACTOR IX HUMAN COMPLEX [Suspect]
     Dosage: UNK
     Route: 042
     Dates: start: 20130807, end: 20130807
  13. LEVOTHYROX [Concomitant]
     Dosage: 100 MICROGRAM, QD
     Route: 048
  14. PERFALGAN [Concomitant]
     Dosage: 1 G, QD
     Route: 042
     Dates: start: 20130712, end: 20130716
  15. INVANZ [Concomitant]
     Indication: URINARY TRACT INFECTION
     Dosage: 1 G, QD
     Route: 042
     Dates: start: 20130709, end: 20130712
  16. CORDARONE [Concomitant]
     Dosage: 1 DF, QD
     Route: 048

REACTIONS (2)
  - Leukopenia [Recovered/Resolved]
  - Anaemia [Unknown]
